FAERS Safety Report 8537866-X (Version None)
Quarter: 2012Q3

REPORT INFORMATION
  Report Type: 
  Country: None (occurrence: None)
  Receive Date: 20120725
  Receipt Date: 20120716
  Transmission Date: 20120928
  Serious: Yes (Hospitalization)
  Sender: FDA-Public Use
  Company Number: US-GLAXOSMITHKLINE-A0809393A

PATIENT
  Age: 55 Year
  Sex: Male

DRUGS (1)
  1. AVANDIA [Suspect]
     Indication: DIABETES MELLITUS
     Dosage: 4MG PER DAY
     Route: 065
     Dates: start: 20020422, end: 20070108

REACTIONS (4)
  - HEPATIC ENZYME INCREASED [None]
  - DIABETES MELLITUS INADEQUATE CONTROL [None]
  - HEPATIC CIRRHOSIS [None]
  - LIVER DISORDER [None]
